FAERS Safety Report 8736194 (Version 3)
Quarter: 2012Q4

REPORT INFORMATION
  Report Type: 
  Country: US (occurrence: US)
  Receive Date: 20120822
  Receipt Date: 20121126
  Transmission Date: 20130627
  Serious: Yes (Other)
  Sender: FDA-Public Use
  Company Number: US-TEVA-354622USA

PATIENT
  Age: 31 Year
  Sex: Female

DRUGS (2)
  1. CLARAVIS [Suspect]
     Dosage: 20 Milligram Daily;
     Route: 048
     Dates: start: 201207, end: 20120815
  2. YASMIN [Concomitant]
     Indication: CONTRACEPTION
     Dates: end: 20120815

REACTIONS (1)
  - Unintended pregnancy [Unknown]
